FAERS Safety Report 20411209 (Version 1)
Quarter: 2022Q1

REPORT INFORMATION
  Report Type: Report from Study
  Country: CA (occurrence: CA)
  Receive Date: 20220201
  Receipt Date: 20220201
  Transmission Date: 20220424
  Serious: Yes (Hospitalization)
  Sender: FDA-Public Use
  Company Number: CA-JNJFOC-20220145114

PATIENT
  Age: 57 Year
  Sex: Female
  Weight: 58.9 kg

DRUGS (3)
  1. SIMPONI [Suspect]
     Active Substance: GOLIMUMAB
     Indication: Crohn^s disease
     Route: 058
     Dates: start: 20210609, end: 20220127
  2. SIMPONI [Suspect]
     Active Substance: GOLIMUMAB
  3. STELARA [Concomitant]
     Active Substance: USTEKINUMAB
     Dates: start: 20220122

REACTIONS (3)
  - Pneumonia respiratory syncytial viral [Unknown]
  - Abdominal pain [Not Recovered/Not Resolved]
  - Diarrhoea [Not Recovered/Not Resolved]

NARRATIVE: CASE EVENT DATE: 20220105
